FAERS Safety Report 23790657 (Version 1)
Quarter: 2024Q2

REPORT INFORMATION
  Report Type: Spontaneous
  Country: NL (occurrence: NL)
  Receive Date: 20240427
  Receipt Date: 20240427
  Transmission Date: 20240715
  Serious: Yes (Other)
  Sender: FDA-Public Use
  Company Number: None

PATIENT
  Age: 46 Year
  Sex: Female
  Weight: 67 kg

DRUGS (2)
  1. QUETIAPINE [Suspect]
     Active Substance: QUETIAPINE
     Indication: Sleep disorder
     Dosage: BEFORE GOING TO SLEEP: BRAND NAME NOT SPECIFIED
     Route: 065
     Dates: start: 20180501
  2. VORTIOXETINE DL-LACTATE [Suspect]
     Active Substance: VORTIOXETINE DL-LACTATE
     Indication: Panic reaction
     Dosage: 1 TABLET ONCE PER DAY: VORTIOXETINE / BRINTELLIX TABLET FILMOMHULD 20MG
     Route: 065
     Dates: start: 20180515

REACTIONS (5)
  - Restless arm syndrome [Recovering/Resolving]
  - Weight increased [Not Recovered/Not Resolved]
  - Visual impairment [Not Recovered/Not Resolved]
  - Dry eye [Not Recovered/Not Resolved]
  - Restless legs syndrome [Recovering/Resolving]
